FAERS Safety Report 7900810-X (Version None)
Quarter: 2011Q4

REPORT INFORMATION
  Report Type: 
  Country: None (occurrence: None)
  Receive Date: 20111108
  Receipt Date: 20111028
  Transmission Date: 20120403
  Serious: Yes (Death, Other)
  Sender: FDA-Public Use
  Company Number: FR-GENZYME-CLOF-1001867

PATIENT
  Sex: Male
  Weight: 55 kg

DRUGS (1)
  1. CLOFARABINE [Suspect]
     Indication: ACUTE LYMPHOCYTIC LEUKAEMIA
     Dosage: 60 MG, QD
     Route: 042
     Dates: start: 20110721, end: 20110725

REACTIONS (4)
  - FEBRILE NEUTROPENIA [None]
  - MUCOSAL INFLAMMATION [None]
  - STREPTOCOCCAL SEPSIS [None]
  - ACUTE LYMPHOCYTIC LEUKAEMIA [None]
